FAERS Safety Report 4865733-1 (Version None)
Quarter: 2005Q4

REPORT INFORMATION
  Report Type: 
  Country: None (occurrence: None)
  Receive Date: 20051220
  Receipt Date: 20051209
  Transmission Date: 20060501
  Serious: Yes (Life-Threatening, Hospitalization)
  Sender: FDA-Public Use
  Company Number: TCI2005A03885

PATIENT
  Age: 79 Year
  Sex: Male

DRUGS (7)
  1. ACTOS [Suspect]
     Indication: DIABETES MELLITUS
     Dosage: 30 MG (30 MG 1 IN 1D)
     Route: 048
     Dates: start: 20050617, end: 20050907
  2. ISOSORBIDE DINITRATE [Concomitant]
  3. TICLOPIDINE HCL [Concomitant]
  4. AMARYL [Concomitant]
  5. LIPITOR [Concomitant]
  6. ADALAT [Concomitant]
  7. SIGMART (NICORANDIL) [Concomitant]

REACTIONS (9)
  - ANURIA [None]
  - BLOOD POTASSIUM INCREASED [None]
  - CARDIAC FAILURE [None]
  - DYSPNOEA [None]
  - FAT EMBOLISM [None]
  - HAEMATOCRIT DECREASED [None]
  - HAEMODIALYSIS [None]
  - PULMONARY CONGESTION [None]
  - RENAL FAILURE ACUTE [None]
